FAERS Safety Report 17987176 (Version 2)
Quarter: 2021Q2

REPORT INFORMATION
  Report Type: Spontaneous
  Country: CA (occurrence: CA)
  Receive Date: 20200707
  Receipt Date: 20210507
  Transmission Date: 20210717
  Serious: Yes (Life-Threatening, Hospitalization)
  Sender: FDA-Public Use
  Company Number: CA-EMCURE PHARMACEUTICALS LTD-2020-EPL-000836

PATIENT
  Age: 9 Year
  Sex: Female
  Weight: 28 kg

DRUGS (19)
  1. OLANZAPINE. [Suspect]
     Active Substance: OLANZAPINE
     Dosage: 5 MILLIGRAM, QD
     Route: 048
  2. ACETAMINOPHEN. [Concomitant]
     Active Substance: ACETAMINOPHEN
  3. FLUTICASONE. [Concomitant]
     Active Substance: FLUTICASONE
  4. MUPIROCIN. [Concomitant]
     Active Substance: MUPIROCIN
     Route: 061
  5. AMLODIPINE [Concomitant]
     Active Substance: AMLODIPINE BESYLATE
  6. LYSODREN [Concomitant]
     Active Substance: MITOTANE
  7. CLOTRIMAZOLE. [Concomitant]
     Active Substance: CLOTRIMAZOLE
  8. NABILONE [Concomitant]
     Active Substance: NABILONE
  9. LANSOPRAZOLE. [Concomitant]
     Active Substance: LANSOPRAZOLE
  10. ONDANSETRON [Suspect]
     Active Substance: ONDANSETRON
     Indication: PRODUCT USED FOR UNKNOWN INDICATION
     Dosage: 4 MILLIGRAM, 2 EVERY 1 DAYS
     Route: 048
  11. BETAMETHASONE. [Concomitant]
     Active Substance: BETAMETHASONE
     Route: 061
  12. DIMENHYDRINATE. [Concomitant]
     Active Substance: DIMENHYDRINATE
     Route: 042
  13. MAGNESIUM [Concomitant]
     Active Substance: MAGNESIUM
  14. PRAZOSIN. [Concomitant]
     Active Substance: PRAZOSIN
  15. SULFAMETHOXAZOLE/TRIMETHOPRIM [Concomitant]
     Active Substance: SULFAMETHOXAZOLE\TRIMETHOPRIM
  16. POLYETHYLENE GLYCOL [Concomitant]
     Active Substance: POLYETHYLENE GLYCOLS
  17. OLANZAPINE. [Suspect]
     Active Substance: OLANZAPINE
     Indication: PRODUCT USED FOR UNKNOWN INDICATION
     Dosage: 2.5 MILLIGRAM, QD
     Route: 048
  18. HEPARIN CALCIUM [Concomitant]
     Active Substance: HEPARIN CALCIUM
  19. HYDROCORTISONE. [Concomitant]
     Active Substance: HYDROCORTISONE
     Dosage: POWDER FOR SOLUTION INTRAMUSCULAR
     Route: 030

REACTIONS (2)
  - Electrocardiogram QT prolonged [Unknown]
  - Disease progression [Unknown]
